FAERS Safety Report 12803599 (Version 1)
Quarter: 2016Q4

REPORT INFORMATION
  Report Type: Spontaneous
  Country: CA (occurrence: CA)
  Receive Date: 20161003
  Receipt Date: 20161003
  Transmission Date: 20170207
  Serious: Yes (Hospitalization)
  Sender: FDA-Public Use
  Company Number: CA-BAXTER-2016BAX049571

PATIENT
  Age: 57 Year
  Sex: Female

DRUGS (8)
  1. DAUNORUBICIN HYDROCHLORIDE. [Suspect]
     Active Substance: DAUNORUBICIN HYDROCHLORIDE
     Indication: PERIPHERAL T-CELL LYMPHOMA UNSPECIFIED
     Route: 042
  2. VINCRISTINE SULFATE. [Suspect]
     Active Substance: VINCRISTINE SULFATE
     Indication: PERIPHERAL T-CELL LYMPHOMA UNSPECIFIED
     Dosage: DOSAGE FORM NOT SPECIFIED
     Route: 042
  3. PREDNISONE. [Suspect]
     Active Substance: PREDNISONE
     Indication: PERIPHERAL T-CELL LYMPHOMA UNSPECIFIED
     Dosage: DOSAGE FORM NOT SPECIFIED
     Route: 042
  4. MABCAMPATH [Suspect]
     Active Substance: ALEMTUZUMAB
     Indication: PERIPHERAL T-CELL LYMPHOMA UNSPECIFIED
     Dosage: SOLUTION INTRAVENOUS
     Route: 058
  5. PROCYTOX (CYCLOPHOSPHAMIDE) 2000MG/VIAL [Suspect]
     Active Substance: CYCLOPHOSPHAMIDE
     Indication: PERIPHERAL T-CELL LYMPHOMA UNSPECIFIED
     Route: 042
  6. NEULASTA [Concomitant]
     Active Substance: PEGFILGRASTIM
     Indication: PRODUCT USED FOR UNKNOWN INDICATION
     Dosage: SOLUTION SUBCUTANEOUS
     Route: 065
  7. SEPTRA [Concomitant]
     Active Substance: SULFAMETHOXAZOLE\TRIMETHOPRIM
     Indication: PRODUCT USED FOR UNKNOWN INDICATION
     Dosage: SOLUTION INTRAVENOUS
     Route: 065
  8. NEUPOGEN [Concomitant]
     Active Substance: FILGRASTIM
     Indication: PRODUCT USED FOR UNKNOWN INDICATION
     Dosage: SOLUTION INTRAVENOUS
     Route: 065

REACTIONS (11)
  - Haematochezia [Not Recovered/Not Resolved]
  - Nausea [Not Recovered/Not Resolved]
  - Hyperhidrosis [Not Recovered/Not Resolved]
  - Paraesthesia [Not Recovered/Not Resolved]
  - Dry mouth [Not Recovered/Not Resolved]
  - Insomnia [Not Recovered/Not Resolved]
  - Decreased appetite [Not Recovered/Not Resolved]
  - Cytomegalovirus infection [Not Recovered/Not Resolved]
  - Restlessness [Not Recovered/Not Resolved]
  - Lymphopenia [Not Recovered/Not Resolved]
  - Neutropenia [Not Recovered/Not Resolved]
